FAERS Safety Report 6862375-3 (Version None)
Quarter: 2010Q3

REPORT INFORMATION
  Report Type: 
  Country: None (occurrence: None)
  Receive Date: 20100716
  Receipt Date: 20100630
  Transmission Date: 20110219
  Serious: Yes (Hospitalization)
  Sender: FDA-Public Use
  Company Number: 015470

PATIENT
  Sex: Female

DRUGS (3)
  1. CERTOLIZUMAB PEGOL (CERTOLIZUMAB PEGOL) [Suspect]
     Indication: CROHN'S DISEASE
     Dosage: 400 MG 1X/2 WEEKS, CDP870-032 SUBCUTANEOUS, 400 MG 1X/MONTH, CPD870-032 SUBCUTANEOUS, 400 MG 1X4 WEE
     Route: 058
     Dates: start: 20040830, end: 20040927
  2. CERTOLIZUMAB PEGOL (CERTOLIZUMAB PEGOL) [Suspect]
     Indication: CROHN'S DISEASE
     Dosage: 400 MG 1X/2 WEEKS, CDP870-032 SUBCUTANEOUS, 400 MG 1X/MONTH, CPD870-032 SUBCUTANEOUS, 400 MG 1X4 WEE
     Route: 058
     Dates: start: 20041024, end: 20050214
  3. CERTOLIZUMAB PEGOL (CERTOLIZUMAB PEGOL) [Suspect]
     Indication: CROHN'S DISEASE
     Dosage: 400 MG 1X/2 WEEKS, CDP870-032 SUBCUTANEOUS, 400 MG 1X/MONTH, CPD870-032 SUBCUTANEOUS, 400 MG 1X4 WEE
     Route: 058
     Dates: start: 20050315

REACTIONS (3)
  - ABDOMINAL ABSCESS [None]
  - INTESTINAL FISTULA [None]
  - LEUKOPENIA [None]
